FAERS Safety Report 24014252 (Version 1)
Quarter: 2024Q2

REPORT INFORMATION
  Report Type: Spontaneous
  Country: US (occurrence: US)
  Receive Date: 20240626
  Receipt Date: 20240626
  Transmission Date: 20240716
  Serious: Yes (Hospitalization)
  Sender: FDA-Public Use
  Company Number: US-TEVA-VS-3212199

PATIENT
  Age: 74 Year
  Sex: Male

DRUGS (1)
  1. LORAZEPAM [Suspect]
     Active Substance: LORAZEPAM
     Indication: Catatonia
     Dosage: TIME INTERVAL: 0.33333333 DAYS: THREE TIMES DAILY; TITRATED TO A TOTAL DAILY DOSAGE OF 9 MG,
     Route: 042

REACTIONS (1)
  - Delirium [Recovered/Resolved]
